FAERS Safety Report 16529222 (Version 1)
Quarter: 2019Q3

REPORT INFORMATION
  Report Type: Spontaneous
  Country: JP (occurrence: JP)
  Receive Date: 20190704
  Receipt Date: 20190704
  Transmission Date: 20191004
  Serious: Yes (Other)
  Sender: FDA-Public Use
  Company Number: PHHY2019JP144182

PATIENT
  Age: 51 Year
  Sex: Female

DRUGS (2)
  1. TACROLIMUS. [Suspect]
     Active Substance: TACROLIMUS
     Indication: LICHEN PLANUS
     Dosage: UNK
     Route: 061
  2. PREDNISOLONE. [Suspect]
     Active Substance: PREDNISOLONE
     Indication: LICHEN PLANUS
     Dosage: 5 MG, QD
     Route: 048

REACTIONS (4)
  - Squamous cell carcinoma of the vulva [Unknown]
  - Therapeutic response decreased [Unknown]
  - Vulval disorder [Unknown]
  - Vulval ulceration [Unknown]
